FAERS Safety Report 4945037-9 (Version None)
Quarter: 2006Q1

REPORT INFORMATION
  Report Type: 
  Country: None (occurrence: None)
  Receive Date: 20060117
  Receipt Date: 20041122
  Transmission Date: 20060701
  Serious: Yes (Hospitalization)
  Sender: FDA-Public Use
  Company Number: A03200403960

PATIENT
  Age: 66 Year
  Sex: Female
  Weight: 63.5036 kg

DRUGS (5)
  1. PLAVIX [Suspect]
     Indication: ANTICOAGULANT THERAPY
     Dosage: 75 MG QD - ORAL
     Route: 048
     Dates: start: 20040124, end: 20040101
  2. PLAVIX [Suspect]
     Indication: ANTICOAGULANT THERAPY
     Dosage: 75 MG QD - ORAL
     Route: 048
     Dates: start: 20040428, end: 20040501
  3. PLAVIX [Suspect]
     Indication: ANTICOAGULANT THERAPY
     Dosage: 75 MG QD - ORAL
     Route: 048
     Dates: start: 20041012
  4. TOPROL-XL [Suspect]
     Dosage: 25 MG QD - ORAL
     Route: 048
     Dates: start: 20040428, end: 20040501
  5. RANITIDINE [Suspect]
     Indication: ULCER
     Dosage: 150 MG BID - ORAL
     Route: 048
     Dates: start: 20041012, end: 20041222

REACTIONS (6)
  - ABDOMINAL PAIN UPPER [None]
  - CONSTIPATION [None]
  - GASTROINTESTINAL ULCER HAEMORRHAGE [None]
  - HEART RATE IRREGULAR [None]
  - RASH [None]
  - TREMOR [None]
